FAERS Safety Report 15760710 (Version 1)
Quarter: 2018Q4

REPORT INFORMATION
  Report Type: Spontaneous
  Country: US (occurrence: US)
  Receive Date: 20181226
  Receipt Date: 20181226
  Transmission Date: 20190205
  Serious: No
  Sender: FDA-Public Use
  Company Number: US-PFIZER INC-2018524543

PATIENT
  Age: 66 Year
  Sex: Female

DRUGS (1)
  1. SKELAXIN [Suspect]
     Active Substance: METAXALONE
     Dosage: UNK

REACTIONS (4)
  - Headache [Unknown]
  - Dizziness [Unknown]
  - Drug hypersensitivity [Unknown]
  - Nausea [Unknown]
